FAERS Safety Report 8780901 (Version 4)
Quarter: 2013Q2

REPORT INFORMATION
  Report Type: Spontaneous
  Country: CA (occurrence: CA)
  Receive Date: 20120913
  Receipt Date: 20130614
  Transmission Date: 20140414
  Serious: Yes (Hospitalization, Other)
  Sender: FDA-Public Use
  Company Number: CA-ELI_LILLY_AND_COMPANY-CA201209000450

PATIENT
  Sex: Female
  Weight: 98.4 kg

DRUGS (31)
  1. FORTEO [Suspect]
     Indication: OSTEOPOROSIS
     Dosage: 20 UG, QD
     Route: 058
     Dates: start: 20120410
  2. HUMULIN NPH [Concomitant]
     Dosage: 8 U, QD
  3. HUMALOG LISPRO [Concomitant]
  4. VITAMIN D [Concomitant]
     Dosage: UNK, UNKNOWN
     Route: 065
  5. CALCIUM [Concomitant]
     Dosage: UNK, UNKNOWN
     Route: 048
  6. SPECTRUM [Concomitant]
     Dosage: UNK, UNKNOWN
     Route: 065
  7. ATORVASTATIN [Concomitant]
     Dosage: UNK, UNKNOWN
     Route: 048
  8. METFORMIN [Concomitant]
     Dosage: UNK, UNKNOWN
     Route: 048
  9. ASAPHEN [Concomitant]
     Dosage: UNK, UNKNOWN
     Route: 048
  10. ACTONEL [Concomitant]
     Dosage: UNK, UNKNOWN
     Route: 065
  11. BISOPROLOL [Concomitant]
     Dosage: UNK, UNKNOWN
     Route: 048
  12. NEXIUM [Concomitant]
     Dosage: UNK, UNKNOWN
     Route: 065
  13. MICARDIS [Concomitant]
     Dosage: 80/12.5MG
     Route: 048
  14. TYLENOL                                 /SCH/ [Concomitant]
     Dosage: UNK, UNKNOWN
     Route: 065
  15. SALBUTAMOL [Concomitant]
     Dosage: 2 U, PRN
     Route: 055
  16. COLESTIPOL [Concomitant]
     Dosage: 2 U, QD
     Route: 048
  17. LYRICA [Concomitant]
     Dosage: 100 MG, UNK
     Route: 048
  18. FLUTICASONE [Concomitant]
     Dosage: 125 UG, BID
     Route: 055
  19. LOPERAMIDE [Concomitant]
     Dosage: 2 MG, 1ST DOSE AND 1 TABLET AFTER EACH LIQUID STOOL, PRN
  20. OMEPRAZOLE [Concomitant]
     Dosage: 40 MG, QD
     Route: 048
  21. PENTASA [Concomitant]
     Dosage: UNK, UNKNOWN
     Route: 065
  22. PREDNISONE [Concomitant]
  23. COUMADIN [Concomitant]
  24. FRAGMIN [Concomitant]
  25. VENTOLIN                                /SCH/ [Concomitant]
  26. ATIVAN [Concomitant]
  27. MAGNESIUM OXIDE [Concomitant]
  28. OS-CAL [Concomitant]
  29. GRAVOL [Concomitant]
  30. ZANTAC [Concomitant]
  31. NIFEDIPINE [Concomitant]

REACTIONS (4)
  - Cerebellar syndrome [Not Recovered/Not Resolved]
  - Ischaemic stroke [Recovered/Resolved]
  - Dysarthria [Not Recovered/Not Resolved]
  - Ataxia [Not Recovered/Not Resolved]
